FAERS Safety Report 5376129-0 (Version None)
Quarter: 2007Q3

REPORT INFORMATION
  Report Type: 
  Country: None (occurrence: None)
  Receive Date: 20070702
  Receipt Date: 20070622
  Transmission Date: 20080115
  Serious: Yes (Hospitalization, Other)
  Sender: FDA-Public Use
  Company Number: B0477279A

PATIENT
  Age: 76 Year
  Sex: Male
  Weight: 89 kg

DRUGS (4)
  1. ROSIGLITAZONE [Suspect]
     Route: 048
     Dates: start: 20061116, end: 20070604
  2. ACARBOSE [Concomitant]
     Dosage: 100MG THREE TIMES PER DAY
     Route: 048
     Dates: start: 20050105
  3. GLICLAZIDE [Concomitant]
     Dosage: 100MG TWICE PER DAY
     Route: 065
     Dates: start: 19960321
  4. IRBESARTAN [Concomitant]
     Indication: HYPERTENSION
     Route: 048
     Dates: start: 20030128, end: 20070202

REACTIONS (2)
  - CHEST PAIN [None]
  - MYOCARDIAL INFARCTION [None]
